FAERS Safety Report 24078511 (Version 2)
Quarter: 2025Q2

REPORT INFORMATION
  Report Type: Spontaneous
  Country: CH (occurrence: CH)
  Receive Date: 20240711
  Receipt Date: 20250522
  Transmission Date: 20250716
  Serious: Yes (Other)
  Sender: MYLAN
  Company Number: CH-MYLANLABS-2024M1064054

PATIENT
  Age: 52 Year
  Sex: Female

DRUGS (16)
  1. VENLAFAXINE [Suspect]
     Active Substance: VENLAFAXINE HYDROCHLORIDE
     Indication: Depression
  2. VENLAFAXINE [Suspect]
     Active Substance: VENLAFAXINE HYDROCHLORIDE
     Indication: Migraine
     Route: 065
  3. VENLAFAXINE [Suspect]
     Active Substance: VENLAFAXINE HYDROCHLORIDE
     Route: 065
  4. VENLAFAXINE [Suspect]
     Active Substance: VENLAFAXINE HYDROCHLORIDE
  5. ESTROGENS [Concomitant]
     Active Substance: ESTROGENS
     Indication: Product used for unknown indication
  6. ESTROGENS [Concomitant]
     Active Substance: ESTROGENS
     Route: 065
  7. ESTROGENS [Concomitant]
     Active Substance: ESTROGENS
     Route: 065
  8. ESTROGENS [Concomitant]
     Active Substance: ESTROGENS
  9. PROGESTERONE [Concomitant]
     Active Substance: PROGESTERONE
     Indication: Product used for unknown indication
  10. PROGESTERONE [Concomitant]
     Active Substance: PROGESTERONE
     Route: 065
  11. PROGESTERONE [Concomitant]
     Active Substance: PROGESTERONE
     Route: 065
  12. PROGESTERONE [Concomitant]
     Active Substance: PROGESTERONE
  13. FREMANEZUMAB [Concomitant]
     Active Substance: FREMANEZUMAB
     Indication: Product used for unknown indication
  14. FREMANEZUMAB [Concomitant]
     Active Substance: FREMANEZUMAB
     Route: 065
  15. FREMANEZUMAB [Concomitant]
     Active Substance: FREMANEZUMAB
     Route: 065
  16. FREMANEZUMAB [Concomitant]
     Active Substance: FREMANEZUMAB

REACTIONS (3)
  - Cardiotoxicity [Recovered/Resolved]
  - Cardiomyopathy [Recovered/Resolved]
  - Hypertension [Recovered/Resolved]
